FAERS Safety Report 15006882 (Version 1)
Quarter: 2018Q2

REPORT INFORMATION
  Report Type: Report from Study
  Country: US (occurrence: US)
  Receive Date: 20180613
  Receipt Date: 20180613
  Transmission Date: 20180711
  Serious: No
  Sender: FDA-Public Use
  Company Number: US-US WORLDMEDS, LLC-USW201803-000473

PATIENT
  Age: 68 Year
  Sex: Female
  Weight: 59.24 kg

DRUGS (14)
  1. LORAZEPAM. [Concomitant]
     Active Substance: LORAZEPAM
  2. LISINOPRIL-HYDROCHLOROTHIAZIDE [Concomitant]
     Active Substance: HYDROCHLOROTHIAZIDE\LISINOPRIL
     Route: 048
  3. LOVASTATIN. [Concomitant]
     Active Substance: LOVASTATIN
     Route: 048
  4. BI-ESTROGEN E2/E3, TESTOSTERONE,PROGESTERONE [Concomitant]
  5. CARBIDOPA ER-LEVODOPA [Concomitant]
     Route: 048
  6. ENTACAPONE. [Concomitant]
     Active Substance: ENTACAPONE
     Route: 048
  7. PRAMIPEXOLE. [Concomitant]
     Active Substance: PRAMIPEXOLE
     Route: 048
  8. AMANTADINE HYDROCHLORIDE. [Concomitant]
     Active Substance: AMANTADINE HYDROCHLORIDE
     Route: 048
  9. CARBIDOPA-LEVODOPA [Concomitant]
     Active Substance: CARBIDOPA\LEVODOPA
     Route: 048
  10. APOKYN [Suspect]
     Active Substance: APOMORPHINE HYDROCHLORIDE
     Indication: PARKINSON^S DISEASE
     Route: 058
     Dates: start: 20180314
  11. TRIMETHOBENZAMIDE [Concomitant]
     Active Substance: TRIMETHOBENZAMIDE
     Route: 048
  12. COQ-10-400 [Concomitant]
     Indication: SUPPLEMENTATION THERAPY
  13. SUPER C22 [Concomitant]
     Indication: SUPPLEMENTATION THERAPY
  14. D3-2000 [Concomitant]
     Indication: SUPPLEMENTATION THERAPY

REACTIONS (1)
  - Lethargy [Recovered/Resolved]

NARRATIVE: CASE EVENT DATE: 20180314
